FAERS Safety Report 7261059-X (Version None)
Quarter: 2011Q1

REPORT INFORMATION
  Report Type: 
  Country: None (occurrence: None)
  Receive Date: 20110130
  Receipt Date: 20101228
  Transmission Date: 20110831
  Serious: No
  Sender: FDA-Public Use
  Company Number: US-ABBOTT-10P-163-0694054-00

PATIENT
  Age: 58 Year
  Sex: Female

DRUGS (10)
  1. HYDROCODONE [Concomitant]
     Indication: PRODUCT USED FOR UNKNOWN INDICATION
     Dosage: PRN
  2. PREDNISONE [Concomitant]
     Indication: PRODUCT USED FOR UNKNOWN INDICATION
  3. ZYRTEC [Concomitant]
     Indication: PRODUCT USED FOR UNKNOWN INDICATION
     Dosage: PRN
  4. CYMBALTA [Concomitant]
     Indication: PRODUCT USED FOR UNKNOWN INDICATION
  5. HUMIRA [Suspect]
     Indication: RHEUMATOID ARTHRITIS
     Dosage: 1 IN 2 WEEKS; INTERRUPTED
     Dates: start: 20100901, end: 20101206
  6. METHOTREXATE [Concomitant]
     Indication: PRODUCT USED FOR UNKNOWN INDICATION
  7. ZOLPIDEM [Concomitant]
     Indication: PRODUCT USED FOR UNKNOWN INDICATION
     Dosage: HS PRN
  8. LISINOPRIL AND HYDROCHLOROTHIAZIDE [Concomitant]
     Indication: PRODUCT USED FOR UNKNOWN INDICATION
  9. DISLUNASAL [Concomitant]
     Indication: PRODUCT USED FOR UNKNOWN INDICATION
  10. FOLIC ACID [Concomitant]
     Indication: PRODUCT USED FOR UNKNOWN INDICATION

REACTIONS (3)
  - FATIGUE [None]
  - FUNGAL INFECTION [None]
  - INAPPROPRIATE SCHEDULE OF DRUG ADMINISTRATION [None]
